FAERS Safety Report 7247501-9 (Version None)
Quarter: 2011Q1

REPORT INFORMATION
  Report Type: 
  Country: None (occurrence: None)
  Receive Date: 20110127
  Receipt Date: 20110114
  Transmission Date: 20110831
  Serious: Yes (Hospitalization)
  Sender: FDA-Public Use
  Company Number: IT-CELGENEUS-083-21880-11011475

PATIENT
  Sex: Female

DRUGS (5)
  1. FUROSEMIDE [Concomitant]
     Route: 065
  2. DEXAMETHASONE [Suspect]
     Indication: MULTIPLE MYELOMA
     Route: 048
     Dates: start: 20101221, end: 20110102
  3. CARBIDOPA + LEVODOPA [Concomitant]
     Route: 065
  4. REVLIMID [Suspect]
     Indication: MULTIPLE MYELOMA
     Route: 048
     Dates: start: 20101221, end: 20110102
  5. DARBEPOETIN ALFA [Concomitant]
     Route: 065

REACTIONS (1)
  - HEMIPARESIS [None]
